FAERS Safety Report 4782622-1 (Version None)
Quarter: 2005Q3

REPORT INFORMATION
  Report Type: 
  Country: None (occurrence: None)
  Receive Date: 20050929
  Receipt Date: 20050503
  Transmission Date: 20060218
  Serious: No
  Sender: FDA-Public Use
  Company Number: 404076

PATIENT
  Age: 79 Year
  Sex: Female

DRUGS (2)
  1. COREG [Suspect]
     Indication: DRUG USE FOR UNKNOWN INDICATION
     Dosage: 25MG TWICE PER DAY
     Route: 048
  2. BLOOD PRESSURE MEDICATION [Concomitant]
     Route: 065

REACTIONS (3)
  - BRONCHOSPASM [None]
  - COUGH [None]
  - WHEEZING [None]
